FAERS Safety Report 9787302 (Version 1)
Quarter: 2013Q4

REPORT INFORMATION
  Report Type: Spontaneous
  Country: US (occurrence: US)
  Receive Date: 20131230
  Receipt Date: 20131230
  Transmission Date: 20140711
  Serious: No
  Sender: FDA-Public Use
  Company Number: US-009507513-1312USA010924

PATIENT
  Age: 69 Year
  Sex: Female

DRUGS (2)
  1. COZAAR [Suspect]
     Dosage: 200 MG, ONCE
     Route: 048
     Dates: start: 20131220, end: 20131220
  2. COZAAR [Suspect]
     Dosage: 100 MG, UNK
     Route: 048

REACTIONS (1)
  - Accidental overdose [Unknown]
